FAERS Safety Report 6178666-8 (Version None)
Quarter: 2009Q2

REPORT INFORMATION
  Report Type: 
  Country: None (occurrence: None)
  Receive Date: 20090430
  Receipt Date: 20080415
  Transmission Date: 20091009
  Serious: Yes (Other)
  Sender: FDA-Public Use
  Company Number: DSU-2009-00893

PATIENT
  Age: 74 Year
  Sex: Female
  Weight: 83.9154 kg

DRUGS (3)
  1. BENICAR [Suspect]
     Indication: DRUG USE FOR UNKNOWN INDICATION
  2. NORVASC [Suspect]
     Indication: HYPERTENSION
     Dosage: 10 MG, PER ORAL
     Route: 048
     Dates: start: 20070501
  3. COZAAR [Suspect]
     Indication: HYPERTENSION

REACTIONS (16)
  - ANGINA PECTORIS [None]
  - ASTHENIA [None]
  - BLOOD GLUCOSE INCREASED [None]
  - BLOOD PRESSURE INCREASED [None]
  - DEHYDRATION [None]
  - DYSPEPSIA [None]
  - DYSPNOEA [None]
  - FEELING ABNORMAL [None]
  - MIGRAINE [None]
  - MOBILITY DECREASED [None]
  - PAIN [None]
  - POLLAKIURIA [None]
  - RENAL PAIN [None]
  - SCREAMING [None]
  - SKIN SWELLING [None]
  - WEIGHT INCREASED [None]
